FAERS Safety Report 17201770 (Version 1)
Quarter: 2019Q4

REPORT INFORMATION
  Report Type: Spontaneous
  Country: US (occurrence: US)
  Receive Date: 20191203
  Receipt Date: 20191203
  Transmission Date: 20200122
  Serious: Yes (Disabling, Other)
  Sender: FDA-Public Use
  Company Number: None

PATIENT
  Age: 71 Year
  Sex: Female
  Weight: 67.59 kg

DRUGS (4)
  1. LANTUS [Suspect]
     Active Substance: INSULIN GLARGINE
     Indication: TYPE 1 DIABETES MELLITUS
     Dosage: ?          QUANTITY:100 IU INTERNATIONAL UNIT(S);?
     Route: 058
     Dates: start: 20050616
  2. LEVOTHYROXIN [Concomitant]
     Active Substance: LEVOTHYROXINE
  3. APIDRA [Suspect]
     Active Substance: INSULIN GLULISINE
     Dosage: ?          QUANTITY:100 IU INTERNATIONAL UNIT(S);?
     Route: 058
  4. BENADRYL [Concomitant]
     Active Substance: DIPHENHYDRAMINE HYDROCHLORIDE

REACTIONS (3)
  - Blood glucose increased [None]
  - Therapeutic product effect incomplete [None]
  - Product complaint [None]

NARRATIVE: CASE EVENT DATE: 20190101
